FAERS Safety Report 14636476 (Version 6)
Quarter: 2018Q2

REPORT INFORMATION
  Report Type: Spontaneous
  Country: US (occurrence: US)
  Receive Date: 20180314
  Receipt Date: 20180614
  Transmission Date: 20180711
  Serious: Yes (Hospitalization, Other)
  Sender: FDA-Public Use
  Company Number: US-PFIZER INC-2016566749

PATIENT
  Age: 59 Year
  Sex: Female
  Weight: 61.22 kg

DRUGS (4)
  1. XELJANZ [Suspect]
     Active Substance: TOFACITINIB CITRATE
     Indication: RHEUMATOID ARTHRITIS
     Dosage: 5 MG, DAILY
     Route: 048
     Dates: start: 201512
  2. RASUVO [Suspect]
     Active Substance: METHOTREXATE SODIUM
     Dosage: UNK
  3. XELJANZ [Suspect]
     Active Substance: TOFACITINIB CITRATE
     Dosage: 5 MG, UNK
     Route: 048
     Dates: start: 201607
  4. XELJANZ [Suspect]
     Active Substance: TOFACITINIB CITRATE
     Dosage: 5 MG, 2X/DAY
     Route: 048
     Dates: end: 20180423

REACTIONS (15)
  - Fatigue [Unknown]
  - Rib fracture [Unknown]
  - Weight increased [Unknown]
  - Arthralgia [Unknown]
  - Joint swelling [Unknown]
  - Cardiac failure congestive [Unknown]
  - Fall [Unknown]
  - Drug ineffective [Unknown]
  - Dyspnoea [Unknown]
  - Pain in extremity [Unknown]
  - Neoplasm malignant [Unknown]
  - Urinary tract infection [Recovering/Resolving]
  - Joint stiffness [Unknown]
  - Influenza [Unknown]
  - Blood glucose increased [Unknown]

NARRATIVE: CASE EVENT DATE: 201701
